FAERS Safety Report 13230378 (Version 1)
Quarter: 2017Q1

REPORT INFORMATION
  Report Type: Spontaneous
  Country: US (occurrence: US)
  Receive Date: 20170214
  Receipt Date: 20170214
  Transmission Date: 20170428
  Serious: Yes (Other)
  Sender: FDA-Public Use
  Company Number: None

PATIENT
  Age: 56 Year
  Sex: Male

DRUGS (1)
  1. DEMEROL [Suspect]
     Active Substance: MEPERIDINE HYDROCHLORIDE
     Indication: SURGERY
     Dosage: OTHER FREQUENCY:DIVIDED DOSE OF 25;?INTRAVENOUS (NOT OTHERWISE SPECIFIED)
     Route: 042
     Dates: start: 20170213, end: 20170213

REACTIONS (3)
  - Infusion site erythema [None]
  - Infusion site swelling [None]
  - Urticaria [None]

NARRATIVE: CASE EVENT DATE: 20170213
